FAERS Safety Report 12238075 (Version 1)
Quarter: 2016Q2

REPORT INFORMATION
  Report Type: Spontaneous
  Country: US (occurrence: US)
  Receive Date: 20160405
  Receipt Date: 20160405
  Transmission Date: 20160815
  Serious: No
  Sender: FDA-Public Use
  Company Number: US-ACTAVIS-2016-04593

PATIENT
  Sex: Female

DRUGS (1)
  1. NICOTINE POLACRILEX [Suspect]
     Active Substance: NICOTINE
     Indication: STRESS
     Dosage: UNK, UNKNOWN
     Route: 065

REACTIONS (4)
  - Product use issue [Unknown]
  - Dependence [Unknown]
  - Intentional product misuse [Unknown]
  - Nicotine dependence [None]
